FAERS Safety Report 25503010 (Version 1)
Quarter: 2025Q3

REPORT INFORMATION
  Report Type: Spontaneous
  Country: EU (occurrence: EU)
  Receive Date: 20250702
  Receipt Date: 20250702
  Transmission Date: 20251020
  Serious: Yes (Death, Other)
  Sender: SANDOZ
  Company Number: EU-CLGN-20-00273

PATIENT
  Age: 45 Year
  Sex: Male
  Weight: 79.8 kg

DRUGS (6)
  1. CYCLOPHOSPHAMIDE [Suspect]
     Active Substance: CYCLOPHOSPHAMIDE
     Indication: Neoplasm
     Route: 042
     Dates: start: 20200302, end: 20200303
  2. FLUDARABINE [Suspect]
     Active Substance: FLUDARABINE PHOSPHATE
     Route: 065
     Dates: start: 20240808, end: 20240812
  3. FLUDARABINE [Suspect]
     Active Substance: FLUDARABINE PHOSPHATE
     Indication: Neoplasm
     Route: 042
     Dates: start: 20200304, end: 20200305
  4. LIFILEUCEL [Suspect]
     Active Substance: LIFILEUCEL
     Indication: Neoplasm
     Route: 042
     Dates: start: 20200309
  5. PEMBROLIZUMAB [Suspect]
     Active Substance: PEMBROLIZUMAB
     Indication: Neoplasm
     Route: 042
     Dates: start: 20200226, end: 20200226
  6. PROLEUKIN [Suspect]
     Active Substance: ALDESLEUKIN
     Indication: Neoplasm
     Route: 042
     Dates: start: 20200309, end: 20200310

REACTIONS (2)
  - Cytokine release syndrome [Fatal]
  - Septic shock [Unknown]

NARRATIVE: CASE EVENT DATE: 20200311
